FAERS Safety Report 5451378-1 (Version None)
Quarter: 2007Q3

REPORT INFORMATION
  Report Type: 
  Country: None (occurrence: None)
  Receive Date: 20070913
  Receipt Date: 20070906
  Transmission Date: 20080115
  Serious: Yes (Hospitalization, Other)
  Sender: FDA-Public Use
  Company Number: JP-MERCK-0708USA04635

PATIENT
  Age: 29 Year
  Sex: Male

DRUGS (16)
  1. PRIMAXIN [Suspect]
     Indication: BACTERIAL INFECTION
     Route: 042
  2. ERYTHROMYCIN [Suspect]
     Indication: PNEUMONIA
     Route: 048
     Dates: end: 20010519
  3. ISCOTIN [Suspect]
     Indication: PNEUMONIA
     Route: 048
     Dates: start: 20010519, end: 20010607
  4. DIFLUCAN [Suspect]
     Indication: PNEUMONIA
     Route: 042
     Dates: start: 20010519, end: 20010612
  5. DENOSINE [Suspect]
     Indication: PNEUMONIA
     Route: 042
     Dates: start: 20010519, end: 20010601
  6. CARBENIN [Suspect]
     Indication: PNEUMONIA
     Route: 051
     Dates: start: 20010528, end: 20010615
  7. FIRSTCIN [Suspect]
     Indication: PNEUMONIA
     Route: 042
     Dates: start: 20010519, end: 20010528
  8. ETHAMBUTOL HYDROCHLORIDE [Suspect]
     Indication: PNEUMONIA
     Route: 048
     Dates: end: 20010521
  9. SOLU-MEDROL [Suspect]
     Indication: PNEUMONIA
     Route: 048
     Dates: start: 20010519, end: 20010521
  10. FOY [Suspect]
     Indication: DISSEMINATED INTRAVASCULAR COAGULATION
     Route: 042
     Dates: start: 20010519, end: 20010531
  11. FUTHAN [Suspect]
     Indication: EXTRACORPOREAL CIRCULATION
     Route: 042
     Dates: start: 20010519, end: 20010527
  12. VENOGLOBULIN [Suspect]
     Indication: PNEUMONIA
     Route: 042
     Dates: start: 20010520, end: 20010522
  13. LASIX [Suspect]
     Indication: POLYURIA
     Route: 042
     Dates: start: 20010519, end: 20010604
  14. DIPRIVAN [Suspect]
     Indication: SEDATION
     Route: 042
     Dates: start: 20010519, end: 20010603
  15. DOPAMINE HYDROCHLORIDE [Suspect]
     Indication: BLOOD PRESSURE INCREASED
     Route: 042
     Dates: start: 20010519, end: 20010531
  16. BAKTAR [Suspect]
     Indication: PNEUMONIA
     Route: 048
     Dates: start: 20010519, end: 20010522

REACTIONS (11)
  - CLOSTRIDIAL INFECTION [None]
  - DIABETES MELLITUS [None]
  - DIARRHOEA [None]
  - METABOLIC ACIDOSIS [None]
  - RASH [None]
  - RENAL FAILURE [None]
  - RENAL IMPAIRMENT [None]
  - RENAL TUBULAR NECROSIS [None]
  - RESPIRATORY ACIDOSIS [None]
  - RESPIRATORY FAILURE [None]
  - SEPSIS [None]
